FAERS Safety Report 5307897-1 (Version None)
Quarter: 2007Q2

REPORT INFORMATION
  Report Type: 
  Country: None (occurrence: None)
  Receive Date: 20070420
  Receipt Date: 20070410
  Transmission Date: 20071010
  Serious: Yes (Other)
  Sender: FDA-Public Use
  Company Number: US019856

PATIENT
  Age: 55 Year
  Sex: Female

DRUGS (10)
  1. GABITRIL [Suspect]
     Indication: AGORAPHOBIA
     Dosage: 8 MG QHS ORAL
     Route: 048
     Dates: start: 20060927, end: 20070115
  2. GABITRIL [Suspect]
     Indication: PANIC ATTACK
     Dosage: 8 MG QHS ORAL
     Route: 048
     Dates: start: 20060927, end: 20070115
  3. GABITRIL [Suspect]
     Indication: POST-TRAUMATIC STRESS DISORDER
     Dosage: 8 MG QHS ORAL
     Route: 048
     Dates: start: 20060927, end: 20070115
  4. ZOLOFT [Concomitant]
  5. CYMBALTA [Concomitant]
  6. LIPITOR [Concomitant]
  7. KLONOPIN [Concomitant]
  8. DILTIAZEM [Concomitant]
  9. AMBIEN [Concomitant]
  10. NEURONTIN [Concomitant]

REACTIONS (3)
  - ASTHMA [None]
  - CONVULSION [None]
  - PNEUMONIA [None]
